FAERS Safety Report 9786941 (Version 2)
Quarter: 2013Q4

REPORT INFORMATION
  Report Type: Report from Study
  Country: CA (occurrence: CA)
  Receive Date: 20131227
  Receipt Date: 20131231
  Transmission Date: 20140711
  Serious: Yes (Death)
  Sender: FDA-Public Use
  Company Number: CA-ABBVIE-13P-028-1183933-00

PATIENT
  Sex: Male
  Weight: 101.7 kg

DRUGS (1)
  1. LUPRON DEPOT [Suspect]
     Indication: PROSTATE CANCER
     Route: 030
     Dates: start: 20110516

REACTIONS (2)
  - Procedural intestinal perforation [Fatal]
  - Large intestine benign neoplasm [Fatal]
